FAERS Safety Report 11708216 (Version 1)
Quarter: 2015Q4

REPORT INFORMATION
  Report Type: Spontaneous
  Country: US (occurrence: US)
  Receive Date: 20151104
  Receipt Date: 20151104
  Transmission Date: 20160304
  Serious: No
  Sender: FDA-Public Use
  Company Number: US-ELI_LILLY_AND_COMPANY-US201106003233

PATIENT
  Age: 85 Year
  Sex: Female

DRUGS (2)
  1. FORTEO [Suspect]
     Active Substance: TERIPARATIDE
     Indication: OSTEOPOROSIS
     Dosage: 20 UG, QD
     Route: 065
     Dates: start: 20110224
  2. FORTEO [Suspect]
     Active Substance: TERIPARATIDE
     Dosage: 20 UG, QD
     Route: 065
     Dates: end: 201007

REACTIONS (6)
  - Pain in extremity [Recovered/Resolved]
  - Muscular weakness [Recovered/Resolved]
  - Tooth infection [Unknown]
  - Arthralgia [Recovered/Resolved]
  - Drug dose omission [Unknown]
  - Gingival bleeding [Unknown]

NARRATIVE: CASE EVENT DATE: 201107
